FAERS Safety Report 23646687 (Version 2)
Quarter: 2024Q1

REPORT INFORMATION
  Report Type: Spontaneous
  Country: US (occurrence: US)
  Receive Date: 20240319
  Receipt Date: 20240326
  Transmission Date: 20240409
  Serious: Yes (Hospitalization)
  Sender: FDA-Public Use
  Company Number: US-BEH-2024169428

PATIENT
  Age: 19 Year
  Sex: Male

DRUGS (1)
  1. PRIVIGEN [Suspect]
     Active Substance: HUMAN IMMUNOGLOBULIN G
     Indication: Hypogammaglobulinaemia
     Dosage: 20 GRAM, EVERY 4 WEEKS
     Route: 042
     Dates: start: 201910

REACTIONS (7)
  - Pneumonia bacterial [Not Recovered/Not Resolved]
  - Acute respiratory failure [Not Recovered/Not Resolved]
  - Sepsis [Not Recovered/Not Resolved]
  - Volvulus [Not Recovered/Not Resolved]
  - Intestinal operation [Not Recovered/Not Resolved]
  - Therapy interrupted [Unknown]
  - No adverse event [Unknown]
